FAERS Safety Report 4815314-0 (Version None)
Quarter: 2005Q4

REPORT INFORMATION
  Report Type: 
  Country: None (occurrence: None)
  Receive Date: 20051027
  Receipt Date: 20051013
  Transmission Date: 20060501
  Serious: Yes (Other)
  Sender: FDA-Public Use
  Company Number: 2005141703

PATIENT
  Sex: Female

DRUGS (1)
  1. BENADRYL [Suspect]
     Indication: FOOD ALLERGY
     Dosage: 2 KAPSEALS, ORAL
     Route: 048
     Dates: start: 19920101, end: 19920101

REACTIONS (2)
  - DRUG HYPERSENSITIVITY [None]
  - RESPIRATORY ARREST [None]
